FAERS Safety Report 8495060-5 (Version None)
Quarter: 2012Q3

REPORT INFORMATION
  Report Type: 
  Country: None (occurrence: None)
  Receive Date: 20120709
  Receipt Date: 20120706
  Transmission Date: 20120928
  Serious: No
  Sender: FDA-Public Use
  Company Number: PHHY2012LB058411

PATIENT
  Sex: Male

DRUGS (3)
  1. ATARAX [Concomitant]
     Indication: RASH
     Dosage: UNK
     Dates: start: 20090101
  2. RAVAMIL [Concomitant]
     Indication: HYPERTENSION
     Dosage: UNK
     Dates: start: 20090101
  3. TASIGNA [Suspect]
     Indication: CHRONIC MYELOID LEUKAEMIA
     Dosage: 800 MG, DAILY
     Route: 048
     Dates: start: 20110224

REACTIONS (1)
  - RASH [None]
